FAERS Safety Report 23077610 (Version 1)
Quarter: 2023Q4

REPORT INFORMATION
  Report Type: Spontaneous
  Country: US (occurrence: US)
  Receive Date: 20231018
  Receipt Date: 20231018
  Transmission Date: 20240110
  Serious: No
  Sender: FDA-Public Use
  Company Number: US-BEH-2023164355

PATIENT
  Age: 3 Year
  Sex: Female

DRUGS (1)
  1. HIZENTRA [Suspect]
     Active Substance: HUMAN IMMUNOGLOBULIN G
     Dosage: UNK UNK, QOW
     Route: 065

REACTIONS (2)
  - Infusion site swelling [Unknown]
  - Infusion site induration [Unknown]

NARRATIVE: CASE EVENT DATE: 20231006
